FAERS Safety Report 7037077-3 (Version None)
Quarter: 2010Q4

REPORT INFORMATION
  Report Type: 
  Country: None (occurrence: None)
  Receive Date: 20101011
  Receipt Date: 20100927
  Transmission Date: 20110411
  Serious: Yes (Other)
  Sender: FDA-Public Use
  Company Number: PHHY2010US64219

PATIENT
  Sex: Male

DRUGS (7)
  1. DIOVAN [Suspect]
     Dosage: 80 MG, UNK
  2. PANTOPRAZOLE [Concomitant]
  3. METOPROLOL TARTRATE [Concomitant]
  4. PLAVIX [Concomitant]
  5. SIMVASTATIN [Concomitant]
  6. VITAMIN D [Concomitant]
  7. MULTI-VITAMINS [Concomitant]

REACTIONS (1)
  - MYOCARDIAL INFARCTION [None]
